FAERS Safety Report 15157270 (Version 1)
Quarter: 2018Q3

REPORT INFORMATION
  Report Type: Spontaneous
  Country: US (occurrence: US)
  Receive Date: 20180718
  Receipt Date: 20180718
  Transmission Date: 20181010
  Serious: Yes (Other)
  Sender: FDA-Public Use
  Company Number: US-CIPLA LTD.-2018US11220

PATIENT

DRUGS (3)
  1. AMITRIPTYLINE [Concomitant]
     Active Substance: AMITRIPTYLINE
     Indication: SLEEP DISORDER
     Dosage: 25 MG, UNK
     Route: 065
  2. WARFARIN [Suspect]
     Active Substance: WARFARIN
     Indication: ATRIAL FIBRILLATION
     Dosage: 5 MG,DAILY
     Route: 048
  3. DILTIAZEM. [Concomitant]
     Active Substance: DILTIAZEM
     Indication: PRODUCT USED FOR UNKNOWN INDICATION
     Dosage: UNK
     Route: 065

REACTIONS (2)
  - Skin discolouration [Recovering/Resolving]
  - Pain [Recovering/Resolving]
